FAERS Safety Report 5977153-7 (Version None)
Quarter: 2008Q4

REPORT INFORMATION
  Report Type: 
  Country: None (occurrence: None)
  Receive Date: 20081203
  Receipt Date: 20081124
  Transmission Date: 20090506
  Serious: Yes (Hospitalization)
  Sender: FDA-Public Use
  Company Number: CH-BRISTOL-MYERS SQUIBB COMPANY-14425797

PATIENT
  Age: 42 Year
  Sex: Male

DRUGS (4)
  1. GLUCOPHAGE [Suspect]
     Indication: TYPE 2 DIABETES MELLITUS
     Route: 048
  2. ATACAND PLUS [Concomitant]
     Route: 048
  3. NEXIUM [Concomitant]
     Dosage: 22.3 MG TABS
     Route: 048
  4. GEVILON [Concomitant]
     Dosage: 450MG FILM-COATED TABS
     Route: 048

REACTIONS (4)
  - CARDIOPULMONARY FAILURE [None]
  - ILEUS PARALYTIC [None]
  - LACTIC ACIDOSIS [None]
  - RENAL FAILURE ACUTE [None]
